FAERS Safety Report 12719818 (Version 4)
Quarter: 2018Q2

REPORT INFORMATION
  Report Type: Spontaneous
  Country: DE (occurrence: DE)
  Receive Date: 20160907
  Receipt Date: 20180423
  Transmission Date: 20180711
  Serious: Yes (Other)
  Sender: FDA-Public Use
  Company Number: DE-GLENMARK PHARMACEUTICALS INC, USA.-2016GMK024157

PATIENT
  Age: 65 Year
  Sex: Female

DRUGS (15)
  1. LORAZEPAM. [Interacting]
     Active Substance: LORAZEPAM
     Indication: SEIZURE
     Dosage: AS REQUIERD
     Route: 065
  2. LORAZEPAM. [Interacting]
     Active Substance: LORAZEPAM
     Indication: EPILEPSY
  3. ARTESUNATE [Interacting]
     Active Substance: ARTESUNATE
     Indication: GLIOBLASTOMA MULTIFORME
     Dosage: 200 MG, QD
     Route: 065
     Dates: start: 20150920, end: 20151020
  4. TEMOZOLOMIDE. [Interacting]
     Active Substance: TEMOZOLOMIDE
     Dosage: 200 MG/M2/D/CYCLE, 5 DAYS ON, 23 DAYS OFF FOR
     Route: 065
  5. TEMOZOLOMIDE. [Interacting]
     Active Substance: TEMOZOLOMIDE
     Dosage: 150 MG/M2/D/CYCLE, 5 DAYS ON, 23 DAYS OFF FOR FIRST TWO
     Route: 048
  6. LEVETIRACETAM. [Interacting]
     Active Substance: LEVETIRACETAM
     Indication: EPILEPSY
     Dosage: 1000 MG, QD
     Route: 065
  7. TEMOZOLOMIDE. [Interacting]
     Active Substance: TEMOZOLOMIDE
     Indication: GLIOBLASTOMA MULTIFORME
     Dosage: 50 MG/M2, QD
     Route: 048
     Dates: start: 2014
  8. ONDANSETRON [Interacting]
     Active Substance: ONDANSETRON
     Dosage: UNK
     Route: 065
  9. ONDANSETRON [Suspect]
     Active Substance: ONDANSETRON
     Indication: NAUSEA
     Dosage: 8 MG, QD
     Route: 065
  10. VALPROIC ACID / SODIUM VALPROATE [Interacting]
     Active Substance: VALPROIC ACID
     Indication: GLIOBLASTOMA MULTIFORME
     Dosage: UNK
     Route: 065
  11. LORAZEPAM. [Interacting]
     Active Substance: LORAZEPAM
     Indication: PARTIAL SEIZURES
     Dosage: UNK
     Route: 065
  12. DECOCTION OF CHINESE HERBS [Interacting]
     Active Substance: HERBALS
     Indication: PRODUCT USED FOR UNKNOWN INDICATION
     Dosage: 20 DOSES
     Route: 065
  13. LEVETIRACETAM. [Interacting]
     Active Substance: LEVETIRACETAM
     Dosage: 2750 MG, UNK
     Route: 065
  14. CLOBAZAM [Interacting]
     Active Substance: CLOBAZAM
     Indication: SEIZURE
     Dosage: 5 MG, QD
     Route: 065
  15. CLOBAZAM [Interacting]
     Active Substance: CLOBAZAM
     Dosage: UNK
     Route: 065

REACTIONS (6)
  - Depressed mood [Recovered/Resolved]
  - Weight decreased [Recovered/Resolved]
  - Condition aggravated [Recovered/Resolved]
  - Drug interaction [Recovered/Resolved]
  - Product use in unapproved indication [Unknown]
  - Hepatotoxicity [Recovered/Resolved]

NARRATIVE: CASE EVENT DATE: 20150901
